FAERS Safety Report 4990304-6 (Version None)
Quarter: 2006Q2

REPORT INFORMATION
  Report Type: 
  Country: None (occurrence: None)
  Receive Date: 20060427
  Receipt Date: 20060413
  Transmission Date: 20061013
  Serious: Yes (Hospitalization)
  Sender: FDA-Public Use
  Company Number: 2006RR-02006

PATIENT
  Age: 40 Year
  Sex: Female

DRUGS (3)
  1. CLOMIPRAMINE HCL [Suspect]
     Dosage: 650 MG
  2. FLUOXETINE [Suspect]
     Dosage: 200 MG
  3. AMITRIPTYLINE TABLET [Suspect]
     Dosage: 100 X 50 MG

REACTIONS (12)
  - BLOOD PH DECREASED [None]
  - CONFUSIONAL STATE [None]
  - DRY SKIN [None]
  - HEART RATE INCREASED [None]
  - MULTIPLE DRUG OVERDOSE INTENTIONAL [None]
  - MYDRIASIS [None]
  - PAIN [None]
  - SINUS TACHYCARDIA [None]
  - SKIN WARM [None]
  - SOMNOLENCE [None]
  - TONIC CLONIC MOVEMENTS [None]
  - VENTRICULAR ARRHYTHMIA [None]
